FAERS Safety Report 5893926-3 (Version None)
Quarter: 2008Q3

REPORT INFORMATION
  Report Type: 
  Country: None (occurrence: None)
  Receive Date: 20080923
  Receipt Date: 20080912
  Transmission Date: 20090109
  Serious: Yes (Hospitalization)
  Sender: FDA-Public Use
  Company Number: US-ELI_LILLY_AND_COMPANY-US200805003750

PATIENT
  Age: 59 Year
  Sex: Female

DRUGS (4)
  1. BYETTA [Suspect]
     Indication: TYPE 2 DIABETES MELLITUS
     Dosage: 5 UG, 2/D
     Route: 058
  2. ACTOS [Concomitant]
     Dosage: 30 MG, UNKNOWN
  3. METFORMIN HCL [Concomitant]
     Dosage: 1000 MG, UNKNOWN
  4. AMARYL [Concomitant]
     Dosage: 4 MG, UNKNOWN

REACTIONS (3)
  - GASTRITIS [None]
  - NAUSEA [None]
  - PANCREATITIS [None]
